FAERS Safety Report 13138447 (Version 2)
Quarter: 2017Q1

REPORT INFORMATION
  Report Type: Report from Study
  Country: IT (occurrence: IT)
  Receive Date: 20170123
  Receipt Date: 20170210
  Transmission Date: 20170428
  Serious: Yes (Other)
  Sender: FDA-Public Use
  Company Number: PHHY2017IT007723

PATIENT
  Age: 72 Year
  Sex: Female

DRUGS (1)
  1. REVOLADE [Suspect]
     Active Substance: ELTROMBOPAG
     Indication: THROMBOCYTOPENIA
     Dosage: 50 MG, QD
     Route: 065
     Dates: start: 201610

REACTIONS (2)
  - Herpes ophthalmic [Unknown]
  - Skin reaction [Unknown]

NARRATIVE: CASE EVENT DATE: 201611
